FAERS Safety Report 11942354 (Version 1)
Quarter: 2016Q1

REPORT INFORMATION
  Report Type: Report from Study
  Country: JP (occurrence: JP)
  Receive Date: 20160125
  Receipt Date: 20160125
  Transmission Date: 20160526
  Serious: Yes (Hospitalization, Congenital Anomaly, Other)
  Sender: FDA-Public Use
  Company Number: JP-BRISTOL-MYERS SQUIBB COMPANY-15684319

PATIENT
  Age: 0 Day
  Sex: Male
  Weight: 2.82 kg

DRUGS (1)
  1. ENTECAVIR. [Suspect]
     Active Substance: ENTECAVIR
     Indication: PRODUCT USED FOR UNKNOWN INDICATION
     Dosage: .5 MG, QD
     Route: 064
     Dates: end: 20090731

REACTIONS (9)
  - Pyrexia [Recovered/Resolved]
  - Hydrocele [Unknown]
  - Cryptorchism [Unknown]
  - Upper respiratory tract infection [Recovered/Resolved]
  - Urinary tract infection [Recovered/Resolved]
  - Vesicoureteric reflux [Not Recovered/Not Resolved]
  - Enteritis infectious [Unknown]
  - Eczema [Recovered/Resolved]
  - Foetal exposure during pregnancy [Unknown]

NARRATIVE: CASE EVENT DATE: 20100318
